FAERS Safety Report 4385681-3 (Version None)
Quarter: 2004Q2

REPORT INFORMATION
  Report Type: 
  Country: None (occurrence: None)
  Receive Date: 20040622
  Receipt Date: 20040608
  Transmission Date: 20050107
  Serious: Yes (Other)
  Sender: FDA-Public Use
  Company Number: A0513852A

PATIENT
  Age: 21 Year
  Sex: Female
  Weight: 91.6266 kg

DRUGS (1)
  1. NICODERM CQ [Suspect]
     Indication: EX-SMOKER
     Dosage: 14 MG/ PER DAY/ TRANSDERMAL
     Route: 062
     Dates: start: 20040605, end: 20040607

REACTIONS (5)
  - DIFFICULTY IN WALKING [None]
  - DIZZINESS [None]
  - MALAISE [None]
  - PARALYSIS [None]
  - SENSORY LOSS [None]
